FAERS Safety Report 8073706-3 (Version None)
Quarter: 2012Q1

REPORT INFORMATION
  Report Type: 
  Country: None (occurrence: None)
  Receive Date: 20120126
  Receipt Date: 20120119
  Transmission Date: 20120608
  Serious: Yes (Hospitalization, Disabling, Other)
  Sender: FDA-Public Use
  Company Number: US-MERCK-1108USA02821

PATIENT
  Age: 68 Year
  Sex: Female

DRUGS (5)
  1. FOSAMAX PLUS D [Suspect]
     Indication: OSTEOPENIA
     Route: 048
     Dates: start: 20080301, end: 20100201
  2. FOSAMAX [Suspect]
     Indication: OSTEOPOROSIS
     Route: 048
     Dates: start: 20010401
  3. VITAMINS (UNSPECIFIED) [Concomitant]
     Route: 048
     Dates: start: 20000101
  4. FOSAMAX PLUS D [Suspect]
     Indication: OSTEOPOROSIS
     Route: 048
     Dates: start: 20080301, end: 20100201
  5. FOSAMAX [Suspect]
     Indication: OSTEOPENIA
     Route: 048
     Dates: start: 20010401

REACTIONS (24)
  - HAEMORRHAGIC ANAEMIA [None]
  - CEREBRAL ISCHAEMIA [None]
  - OSTEOARTHRITIS [None]
  - DYSPNOEA EXERTIONAL [None]
  - LEFT VENTRICULAR DYSFUNCTION [None]
  - INSOMNIA [None]
  - CAROTID ARTERY STENOSIS [None]
  - MENTAL STATUS CHANGES [None]
  - OSTEOPOROSIS [None]
  - HYPERCALCAEMIA [None]
  - URINARY TRACT INFECTION [None]
  - MULTIPLE FRACTURES [None]
  - DYSPEPSIA [None]
  - FIBROMYALGIA [None]
  - FALL [None]
  - MITRAL VALVE PROLAPSE [None]
  - BURSITIS [None]
  - STRESS FRACTURE [None]
  - ESSENTIAL HYPERTENSION [None]
  - HYPERCHOLESTEROLAEMIA [None]
  - FEMUR FRACTURE [None]
  - LOW TURNOVER OSTEOPATHY [None]
  - HYPOKALAEMIA [None]
  - MUSCLE SPASMS [None]
